FAERS Safety Report 5156912-7 (Version None)
Quarter: 2006Q4

REPORT INFORMATION
  Report Type: 
  Country: None (occurrence: None)
  Receive Date: 20060918
  Receipt Date: 20060131
  Transmission Date: 20070319
  Serious: Yes (Hospitalization, Other)
  Sender: FDA-Public Use
  Company Number: US-JNJFOC-20051204252

PATIENT
  Age: 60 Year
  Sex: Female

DRUGS (6)
  1. TOPAMAX [Suspect]
     Indication: MIGRAINE PROPHYLAXIS
     Dosage: 25 MG, 1 IN 1 DAY, ORAL
     Route: 048
     Dates: start: 20051101, end: 20051101
  2. LEXAPRO (SSRI) [Concomitant]
  3. NEURONTIN [Concomitant]
  4. AGGRENOX [Concomitant]
  5. TOPROL-XL [Concomitant]
  6. MULTI-VITAMINS [Concomitant]

REACTIONS (2)
  - ANGLE CLOSURE GLAUCOMA [None]
  - MYOPIA [None]
